FAERS Safety Report 19647272 (Version 10)
Quarter: 2022Q3

REPORT INFORMATION
  Report Type: Report from Study
  Country: US (occurrence: US)
  Receive Date: 20210802
  Receipt Date: 20220818
  Transmission Date: 20221026
  Serious: Yes (Other)
  Sender: FDA-Public Use
  Company Number: US-GLAXOSMITHKLINE-US2021AMR162865

PATIENT

DRUGS (5)
  1. BELANTAMAB MAFODOTIN [Suspect]
     Active Substance: BELANTAMAB MAFODOTIN
     Indication: Plasma cell myeloma refractory
     Dosage: 139 MG
     Dates: start: 20200511
  2. BELANTAMAB MAFODOTIN [Suspect]
     Active Substance: BELANTAMAB MAFODOTIN
     Dosage: 139 MG
     Dates: start: 20200601
  3. BELANTAMAB MAFODOTIN [Suspect]
     Active Substance: BELANTAMAB MAFODOTIN
     Dosage: 69 MG
     Dates: start: 202006
  4. BELANTAMAB MAFODOTIN [Suspect]
     Active Substance: BELANTAMAB MAFODOTIN
     Dosage: 138 MG, Z,EVERY 3 WEEKS
     Dates: start: 20210511
  5. BELANTAMAB MAFODOTIN [Suspect]
     Active Substance: BELANTAMAB MAFODOTIN
     Dosage: 69 MG
     Dates: start: 20210106

REACTIONS (10)
  - Blindness [Not Recovered/Not Resolved]
  - Corneal cyst [Not Recovered/Not Resolved]
  - Visual impairment [Not Recovered/Not Resolved]
  - Corneal disorder [Not Recovered/Not Resolved]
  - Photophobia [Not Recovered/Not Resolved]
  - Fatigue [Unknown]
  - Visual acuity reduced [Not Recovered/Not Resolved]
  - Keratopathy [Not Recovered/Not Resolved]
  - Vision blurred [Not Recovered/Not Resolved]
  - Off label use [Unknown]

NARRATIVE: CASE EVENT DATE: 20210712
